FAERS Safety Report 5054655-1 (Version None)
Quarter: 2006Q3

REPORT INFORMATION
  Report Type: 
  Country: None (occurrence: None)
  Receive Date: 20060719
  Receipt Date: 20060710
  Transmission Date: 20061208
  Serious: Yes (Death, Life-Threatening)
  Sender: FDA-Public Use
  Company Number: GB-JNJFOC-20060505365

PATIENT
  Sex: Male
  Weight: 83 kg

DRUGS (7)
  1. REMICADE [Suspect]
     Indication: RHEUMATOID ARTHRITIS
     Route: 042
  2. METHOTREXATE [Concomitant]
     Route: 065
  3. PREDNISOLONE [Concomitant]
     Route: 065
  4. FOLIC ACID [Concomitant]
     Route: 065
  5. HRT [Concomitant]
     Route: 065
  6. ISONIAZID [Concomitant]
     Route: 065
  7. VIOXX [Concomitant]
     Route: 065

REACTIONS (1)
  - LUNG NEOPLASM MALIGNANT [None]
